FAERS Safety Report 10052083 (Version 1)
Quarter: 2014Q2

REPORT INFORMATION
  Report Type: Spontaneous
  Country: US (occurrence: None)
  Receive Date: 20140401
  Receipt Date: 20140401
  Transmission Date: 20141212
  Serious: Yes (Death, Hospitalization)
  Sender: FDA-Public Use
  Company Number: None

PATIENT
  Age: 57 Year
  Sex: Female
  Weight: 112 kg

DRUGS (2)
  1. CYTARABINE [Suspect]
  2. IDARUBICIN [Suspect]

REACTIONS (2)
  - Sinusitis fungal [None]
  - Respiratory failure [None]
